FAERS Safety Report 13329607 (Version 10)
Quarter: 2020Q3

REPORT INFORMATION
  Report Type: Spontaneous
  Country: BR (occurrence: BR)
  Receive Date: 20170313
  Receipt Date: 20200813
  Transmission Date: 20201102
  Serious: Yes (Hospitalization, Other)
  Sender: FDA-Public Use
  Company Number: BR-GLAXOSMITHKLINE-BR2015GSK057166

PATIENT
  Sex: Female
  Weight: 87 kg

DRUGS (8)
  1. BENLYSTA [Suspect]
     Active Substance: BELIMUMAB
     Indication: SYSTEMIC LUPUS ERYTHEMATOSUS
     Dosage: UNK
     Dates: start: 20141030
  2. BENLYSTA [Suspect]
     Active Substance: BELIMUMAB
     Dosage: UNK
     Dates: start: 20161031
  3. BENLYSTA [Suspect]
     Active Substance: BELIMUMAB
     Dosage: UNK
     Dates: start: 20161220
  4. AZATHIOPRINE. [Suspect]
     Active Substance: AZATHIOPRINE
     Indication: ARTHRALGIA
     Dosage: 1 DF, TID
  5. LYRICA [Concomitant]
     Active Substance: PREGABALIN
     Indication: PRODUCT USED FOR UNKNOWN INDICATION
     Dosage: UNK
  6. BENLYSTA [Suspect]
     Active Substance: BELIMUMAB
     Dosage: 450 MG, UNK
     Dates: start: 20190926
  7. ACICLOVIR [Concomitant]
     Active Substance: ACYCLOVIR
     Indication: PRODUCT USED FOR UNKNOWN INDICATION
     Dosage: 200 MG, UNK
  8. PREDNISONE. [Concomitant]
     Active Substance: PREDNISONE
     Indication: PRODUCT USED FOR UNKNOWN INDICATION
     Dosage: 30 MG, UNK

REACTIONS (22)
  - Dyspnoea [Recovering/Resolving]
  - Sinusitis [Recovered/Resolved]
  - Circumstance or information capable of leading to medication error [Recovered/Resolved]
  - COVID-19 [Recovering/Resolving]
  - Influenza [Recovered/Resolved]
  - Arthralgia [Recovered/Resolved]
  - Platelet count decreased [Not Recovered/Not Resolved]
  - Lymphocyte count decreased [Recovered/Resolved]
  - Nasopharyngitis [Unknown]
  - Product dose omission issue [Unknown]
  - Dysphonia [Recovered/Resolved]
  - Off label use [Recovered/Resolved]
  - Incorrect dose administered [Unknown]
  - Weight increased [Unknown]
  - Inappropriate schedule of product administration [Recovered/Resolved]
  - Dysentery [Recovered/Resolved]
  - Thrombocytopenia [Unknown]
  - Herpes zoster [Recovered/Resolved]
  - Sleep disorder due to a general medical condition [Unknown]
  - Exposure during pregnancy [Recovered/Resolved]
  - Cough [Recovering/Resolving]
  - Decreased immune responsiveness [Unknown]
